FAERS Safety Report 10917800 (Version 3)
Quarter: 2015Q2

REPORT INFORMATION
  Report Type: Report from Study
  Country: US (occurrence: US)
  Receive Date: 20150316
  Receipt Date: 20150515
  Transmission Date: 20150821
  Serious: Yes (Hospitalization, Other)
  Sender: FDA-Public Use
  Company Number: US-GLAXOSMITHKLINE-US2015030533

PATIENT
  Age: 54 Year
  Sex: Male
  Weight: 98.1 kg

DRUGS (2)
  1. TRAMETINIB [Suspect]
     Active Substance: TRAMETINIB
     Indication: SARCOMA
     Dosage: 1.5 MG, QD
     Route: 048
     Dates: start: 20141113, end: 20150303
  2. PALBOCICLIB [Suspect]
     Active Substance: PALBOCICLIB
     Indication: SARCOMA
     Dosage: 100 MG, 21 DAYS ON/7 DAYS OFF
     Route: 048
     Dates: start: 20141113, end: 20150225

REACTIONS (2)
  - Retinal haemorrhage [Not Recovered/Not Resolved]
  - Herpes zoster disseminated [Recovered/Resolved]

NARRATIVE: CASE EVENT DATE: 20150219
